FAERS Safety Report 11091218 (Version 1)
Quarter: 2015Q2

REPORT INFORMATION
  Report Type: Spontaneous
  Country: US (occurrence: None)
  Receive Date: 20150504
  Receipt Date: 20150504
  Transmission Date: 20150821
  Serious: Yes (Disabling, Other)
  Sender: FDA-Public Use
  Company Number: None

PATIENT
  Age: 27 Year
  Sex: Female
  Weight: 68.04 kg

DRUGS (1)
  1. TOPAMAX [Suspect]
     Active Substance: TOPIRAMATE
     Indication: SEIZURE
     Dosage: 1 PILL
     Route: 048

REACTIONS (7)
  - Psychotic disorder [None]
  - Dyskinesia [None]
  - Hallucinations, mixed [None]
  - Skin lesion [None]
  - Paranoia [None]
  - Suicidal ideation [None]
  - Schizophrenia [None]

NARRATIVE: CASE EVENT DATE: 20140522
